FAERS Safety Report 4425538-2 (Version None)
Quarter: 2004Q3

REPORT INFORMATION
  Report Type: 
  Country: None (occurrence: None)
  Receive Date: 20040810
  Receipt Date: 20040728
  Transmission Date: 20050211
  Serious: Yes (Other)
  Sender: FDA-Public Use
  Company Number: 2004044785

PATIENT
  Age: 87 Year
  Sex: Female

DRUGS (5)
  1. LIPITOR [Suspect]
     Indication: BLOOD CHOLESTEROL INCREASED
     Dates: start: 20010101, end: 20040301
  2. ALL OTHER NON-THERAPEUTIC PRODUCTS (ALL OTHER NON-THERAPEUTIC PRODUCTS [Suspect]
     Indication: ILL-DEFINED DISORDER
     Dosage: ORAL
     Route: 048
  3. QUINAPRIL HCL [Concomitant]
  4. FUROSEMIDE [Concomitant]
  5. POTASSIUM (POTASSIUM) [Concomitant]

REACTIONS (12)
  - ARTHRITIS [None]
  - ARTHROPOD BITE [None]
  - BLOOD CHOLESTEROL INCREASED [None]
  - BLOOD PRESSURE SYSTOLIC INCREASED [None]
  - CARPAL TUNNEL SYNDROME [None]
  - DIFFICULTY IN WALKING [None]
  - FEELING ABNORMAL [None]
  - MOBILITY DECREASED [None]
  - MUSCULAR WEAKNESS [None]
  - NEUROPATHY [None]
  - OEDEMA PERIPHERAL [None]
  - SKIN DISCOLOURATION [None]
